FAERS Safety Report 4639335-6 (Version None)
Quarter: 2005Q2

REPORT INFORMATION
  Report Type: 
  Country: None (occurrence: None)
  Receive Date: 20050419
  Receipt Date: 20050404
  Transmission Date: 20051028
  Serious: Yes (Hospitalization)
  Sender: FDA-Public Use
  Company Number: FR-ABBOTT-05P-056-0296274-00

PATIENT
  Age: 46 Year
  Sex: Female

DRUGS (3)
  1. DEPAKENE [Suspect]
     Indication: EPILEPSY
     Route: 048
     Dates: start: 19980101
  2. PHENOBARBITAL [Concomitant]
     Indication: EPILEPSY
     Dosage: 50 MG AM AND 100 MG PM
     Route: 048
     Dates: start: 19880101
  3. CALCIFEDIOL [Concomitant]
     Indication: DRUG USE FOR UNKNOWN INDICATION
     Route: 048

REACTIONS (1)
  - SWEAT GLAND INFECTION [None]
